FAERS Safety Report 11506385 (Version 1)
Quarter: 2015Q3

REPORT INFORMATION
  Report Type: Spontaneous
  Country: US (occurrence: US)
  Receive Date: 20150915
  Receipt Date: 20150915
  Transmission Date: 20151125
  Serious: No
  Sender: FDA-Public Use
  Company Number: US-ROCHE-784894

PATIENT
  Sex: Female

DRUGS (2)
  1. RIBAVIRIN. [Suspect]
     Active Substance: RIBAVIRIN
     Indication: HEPATITIS C
     Dosage: DOSE: 1000MG/DAY.
     Route: 065
  2. PEGASYS [Suspect]
     Active Substance: PEGINTERFERON ALFA-2A
     Indication: HEPATITIS C
     Dosage: DOSE: 180 MCG/WEEK
     Route: 065

REACTIONS (4)
  - Abdominal pain [Unknown]
  - Back pain [Unknown]
  - Chills [Unknown]
  - Arthralgia [Unknown]
